FAERS Safety Report 8882647 (Version 2)
Quarter: 2014Q1

REPORT INFORMATION
  Report Type: Spontaneous
  Country: US (occurrence: US)
  Receive Date: 20121102
  Receipt Date: 20140321
  Transmission Date: 20141002
  Serious: Yes (Hospitalization)
  Sender: FDA-Public Use
  Company Number: PHHY2012US097750

PATIENT
  Age: 21 Year
  Sex: Female

DRUGS (2)
  1. MINOCYCLINE [Suspect]
     Indication: ACNE
  2. ORTHO TRI-CYCLEN LO [Concomitant]

REACTIONS (15)
  - Polyarteritis nodosa [Recovered/Resolved]
  - Renal arteritis [Unknown]
  - Fatigue [Recovered/Resolved]
  - Weight decreased [Recovered/Resolved]
  - Myalgia [Recovered/Resolved]
  - Headache [Recovered/Resolved]
  - Polyuria [Recovered/Resolved]
  - Salt craving [Recovered/Resolved]
  - Dyspnoea exertional [Recovered/Resolved]
  - Contusion [Recovered/Resolved]
  - Pharyngitis [Recovered/Resolved]
  - Tachycardia [Recovered/Resolved]
  - Hypertension [Recovered/Resolved]
  - Electrolyte imbalance [Recovered/Resolved]
  - Ejection fraction decreased [Recovered/Resolved]
